FAERS Safety Report 14118913 (Version 1)
Quarter: 2017Q4

REPORT INFORMATION
  Report Type: Spontaneous
  Country: US (occurrence: US)
  Receive Date: 20171024
  Receipt Date: 20171024
  Transmission Date: 20180321
  Serious: No
  Sender: FDA-Public Use
  Company Number: US-GRANULES INDIA LIMITED-2031245

PATIENT
  Sex: Male

DRUGS (1)
  1. CVS NASAL/SINUS DAYTIME/NIGHTIME (ACETAMINOPHEN\DEXTROMETHORPHAN HYDROBROMIDE\DOXYLAMINE SUCCINATE\PHENYLEPHRINE HYDROCHLORIDE) [Suspect]
     Active Substance: ACETAMINOPHEN\DEXTROMETHORPHAN\PHENYLEPHRINE
     Indication: SINUS CONGESTION
     Route: 065

REACTIONS (4)
  - Inappropriate schedule of drug administration [None]
  - Product packaging confusion [None]
  - Product packaging issue [Unknown]
  - Poor quality sleep [Unknown]
